FAERS Safety Report 4880472-9 (Version None)
Quarter: 2006Q1

REPORT INFORMATION
  Report Type: 
  Country: None (occurrence: None)
  Receive Date: 20060113
  Receipt Date: 20060106
  Transmission Date: 20060701
  Serious: Yes (Death, Hospitalization, Other)
  Sender: FDA-Public Use
  Company Number: US-MERCK-0601USA01017

PATIENT
  Age: 80 Year
  Sex: Male
  Weight: 82 kg

DRUGS (6)
  1. VIOXX [Suspect]
     Indication: ARTHRITIS
     Route: 048
     Dates: start: 20000301, end: 20040101
  2. ALTACE [Concomitant]
     Route: 065
  3. FLOMAX (MORNIFLUMATE) [Concomitant]
     Route: 065
  4. PRILOSEC [Concomitant]
     Route: 065
  5. PRAVACHOL [Concomitant]
     Route: 065
  6. COREG [Concomitant]
     Route: 065

REACTIONS (5)
  - CARDIAC ARREST [None]
  - CEREBROVASCULAR DISORDER [None]
  - CORONARY ARTERY DISEASE [None]
  - DEATH [None]
  - MYOCARDIAL INFARCTION [None]
